FAERS Safety Report 23051999 (Version 1)
Quarter: 2023Q4

REPORT INFORMATION
  Report Type: Spontaneous
  Country: GR (occurrence: GR)
  Receive Date: 20231010
  Receipt Date: 20231010
  Transmission Date: 20240109
  Serious: Yes (Hospitalization, Other)
  Sender: FDA-Public Use
  Company Number: GR-ELI_LILLY_AND_COMPANY-GR202309017142

PATIENT
  Age: 66 Year
  Sex: Female

DRUGS (3)
  1. FLUOXETINE HYDROCHLORIDE [Suspect]
     Active Substance: FLUOXETINE HYDROCHLORIDE
     Indication: Epilepsy
     Dosage: 2 DOSAGE FORM, DAILY
     Route: 048
     Dates: start: 2013, end: 202307
  2. FLUOXETINE HYDROCHLORIDE [Suspect]
     Active Substance: FLUOXETINE HYDROCHLORIDE
     Indication: Epilepsy
     Dosage: 2 DOSAGE FORM, DAILY
     Route: 048
     Dates: start: 202307
  3. MIRABEGRON [Concomitant]
     Active Substance: MIRABEGRON
     Indication: Urinary incontinence

REACTIONS (4)
  - Patella fracture [Unknown]
  - Fall [Unknown]
  - Lumbar vertebral fracture [Unknown]
  - Pathological fracture [Unknown]

NARRATIVE: CASE EVENT DATE: 20220101
